FAERS Safety Report 9114741 (Version 1)
Quarter: 2013Q1

REPORT INFORMATION
  Report Type: Spontaneous
  Country: US (occurrence: None)
  Receive Date: 20130220
  Receipt Date: 20130220
  Transmission Date: 20140127
  Serious: Yes (Hospitalization)
  Sender: FDA-Public Use
  Company Number: None

PATIENT
  Age: 60 Year
  Sex: Male
  Weight: 60.6 kg

DRUGS (1)
  1. METHADONE [Suspect]
     Route: 048
     Dates: start: 20120818, end: 20120821

REACTIONS (4)
  - Lethargy [None]
  - Somnolence [None]
  - Drug withdrawal syndrome [None]
  - Dyspnoea [None]
